FAERS Safety Report 4429291-8 (Version None)
Quarter: 2004Q3

REPORT INFORMATION
  Report Type: 
  Country: None (occurrence: None)
  Receive Date: 20040818
  Receipt Date: 20040818
  Transmission Date: 20050211
  Serious: Yes (Life-Threatening)
  Sender: FDA-Public Use
  Company Number: None

PATIENT
  Age: 23 Year
  Sex: Female
  Weight: 77.1115 kg

DRUGS (4)
  1. ANCEF [Suspect]
     Indication: PREOPERATIVE CARE
     Dosage: 1GM  Q6H-X 2 DO  INTRAVENOUS
     Route: 042
     Dates: start: 20040229, end: 20040229
  2. PRECARE [Concomitant]
  3. ZOLOFT [Concomitant]
  4. TYLENOL [Concomitant]

REACTIONS (2)
  - ANAPHYLACTIC REACTION [None]
  - PROCEDURAL COMPLICATION [None]
